FAERS Safety Report 5279567-X (Version None)
Quarter: 2007Q1

REPORT INFORMATION
  Report Type: 
  Country: None (occurrence: None)
  Receive Date: 20070328
  Receipt Date: 20070316
  Transmission Date: 20070707
  Serious: Yes (Hospitalization, Other)
  Sender: FDA-Public Use
  Company Number: US-PFIZER INC-2007022185

PATIENT
  Age: 25 Year
  Sex: Female

DRUGS (2)
  1. EXUBERA [Suspect]
     Indication: DIABETES MELLITUS NON-INSULIN-DEPENDENT
  2. INSULINS AND ANALOGUES, LONG-ACTING [Concomitant]

REACTIONS (1)
  - PULMONARY EMBOLISM [None]
